FAERS Safety Report 5284309-8 (Version None)
Quarter: 2007Q1

REPORT INFORMATION
  Report Type: 
  Country: None (occurrence: None)
  Receive Date: 20061227
  Receipt Date: 20061023
  Transmission Date: 20070707
  Serious: Yes (Other)
  Sender: FDA-Public Use
  Company Number: A03200605495

PATIENT
  Age: 47 Year
  Sex: Female
  Weight: 90.7194 kg

DRUGS (14)
  1. AMBIEN [Suspect]
     Indication: INSOMNIA
     Dosage: 12.5 MG HS - ORAL
     Route: 048
     Dates: start: 20060725, end: 20060101
  2. AMBIEN [Suspect]
     Indication: SLEEP WALKING
     Dosage: 12.5 MG HS - ORAL
     Route: 048
     Dates: start: 20060725, end: 20060101
  3. FEXOFENADINE HYDROCHLORIDE [Concomitant]
  4. ETHINYL ESTRADIOL AND NORETHINDRONE [Concomitant]
  5. DILTIAZEM HYDROCHLORIDE [Concomitant]
  6. GLUCOSAMINE+CHONDROITIN [Concomitant]
  7. VITAMIN CAP [Concomitant]
  8. DICLOFENAC SODIUM [Concomitant]
  9. ACETYLSALICYLIC ACID SRT [Concomitant]
  10. TRIAMTERENE [Concomitant]
  11. MELOXICAM [Concomitant]
  12. VITAMIN CAP [Concomitant]
  13. ALLERGY DROPS [Concomitant]
  14. HYDROXYCHLOROQUINE SULFATE [Concomitant]

REACTIONS (27)
  - AMNESIA [None]
  - BACK PAIN [None]
  - BALANCE DISORDER [None]
  - BLOOD PRESSURE INCREASED [None]
  - CHEST DISCOMFORT [None]
  - CHEST PAIN [None]
  - CONDITION AGGRAVATED [None]
  - CONTUSION [None]
  - DEPRESSED LEVEL OF CONSCIOUSNESS [None]
  - DIAPHRAGMATIC DISORDER [None]
  - DRUG INEFFECTIVE [None]
  - DYSPHAGIA [None]
  - FATIGUE [None]
  - FEELING HOT [None]
  - HYPERHIDROSIS [None]
  - HYPERSOMNIA [None]
  - LETHARGY [None]
  - MUSCLE TIGHTNESS [None]
  - MUSCULOSKELETAL PAIN [None]
  - NAUSEA [None]
  - NECK PAIN [None]
  - PAIN [None]
  - PALLOR [None]
  - SYNCOPE [None]
  - THIRST [None]
  - THROAT TIGHTNESS [None]
  - TREMOR [None]
